FAERS Safety Report 6020537-1 (Version None)
Quarter: 2008Q4

REPORT INFORMATION
  Report Type: 
  Country: None (occurrence: None)
  Receive Date: 20081226
  Receipt Date: 20081217
  Transmission Date: 20090506
  Serious: Yes (Hospitalization, Other)
  Sender: FDA-Public Use
  Company Number: US-ELI_LILLY_AND_COMPANY-US200812004490

PATIENT
  Sex: Female
  Weight: 47.166 kg

DRUGS (5)
  1. FORTEO [Suspect]
     Indication: OSTEOPOROSIS
     Dosage: UNK, UNK
     Dates: start: 20060120, end: 20071201
  2. FORTEO [Suspect]
  3. CITRACAL [Concomitant]
  4. VITAMIN D [Concomitant]
  5. ATIVAN [Concomitant]
     Dosage: 0.5 MG, UNK

REACTIONS (12)
  - ABDOMINAL PAIN LOWER [None]
  - BONE DISORDER [None]
  - EATING DISORDER [None]
  - EMOTIONAL DISTRESS [None]
  - FALL [None]
  - JOINT RANGE OF MOTION DECREASED [None]
  - PAIN [None]
  - STRESS FRACTURE [None]
  - SWELLING [None]
  - TIBIA FRACTURE [None]
  - VITAMIN D DECREASED [None]
  - WEIGHT DECREASED [None]
